FAERS Safety Report 7320910-5 (Version None)
Quarter: 2011Q1

REPORT INFORMATION
  Report Type: 
  Country: None (occurrence: None)
  Receive Date: 20110228
  Receipt Date: 20110215
  Transmission Date: 20110831
  Serious: Yes (Hospitalization, Disabling, Other)
  Sender: FDA-Public Use
  Company Number: US-MERCK-1008USA01074

PATIENT
  Age: 70 Year
  Sex: Female
  Weight: 69 kg

DRUGS (6)
  1. FOSAMAX [Suspect]
     Indication: OSTEOPOROSIS
     Route: 048
     Dates: start: 19980101, end: 20000705
  2. PENTASA [Concomitant]
     Indication: CROHN'S DISEASE
     Route: 065
     Dates: start: 20000101, end: 20101201
  3. FOSAMAX [Suspect]
     Route: 048
     Dates: start: 20010201, end: 20060725
  4. CALCIUM (UNSPECIFIED) [Concomitant]
     Indication: OSTEOPOROSIS
     Route: 065
  5. FOSAMAX [Suspect]
     Route: 048
     Dates: start: 20010201
  6. BONIVA [Suspect]
     Indication: OSTEOPOROSIS
     Route: 048
     Dates: start: 20060101, end: 20070101

REACTIONS (43)
  - DIZZINESS [None]
  - EAR PAIN [None]
  - SINUSITIS [None]
  - RHINITIS [None]
  - MALABSORPTION [None]
  - OSTEONECROSIS OF JAW [None]
  - DEAFNESS [None]
  - CATARACT [None]
  - CORONARY ARTERY DISEASE [None]
  - DIARRHOEA [None]
  - DYSLIPIDAEMIA [None]
  - TOOTH DISORDER [None]
  - LICHEN SCLEROSUS [None]
  - OVARIAN DISORDER [None]
  - MASS [None]
  - LOW TURNOVER OSTEOPATHY [None]
  - OVARIAN CYST [None]
  - CARDIAC VALVE DISEASE [None]
  - HEADACHE [None]
  - UPPER RESPIRATORY TRACT INFECTION [None]
  - RETINITIS PIGMENTOSA [None]
  - APPENDIX DISORDER [None]
  - INTESTINAL OBSTRUCTION [None]
  - EXOSTOSIS [None]
  - DYSPNOEA PAROXYSMAL NOCTURNAL [None]
  - TOOTH FRACTURE [None]
  - PALPITATIONS [None]
  - FACE INJURY [None]
  - SMALL INTESTINAL OBSTRUCTION [None]
  - GASTROINTESTINAL DISORDER [None]
  - TOOTH ABSCESS [None]
  - INFECTION [None]
  - HOT FLUSH [None]
  - FIBROCYSTIC BREAST DISEASE [None]
  - ORAL TORUS [None]
  - NASAL SEPTUM DEVIATION [None]
  - ABDOMINAL ADHESIONS [None]
  - ILEUS PARALYTIC [None]
  - CROHN'S DISEASE [None]
  - CELLULITIS [None]
  - DERMATITIS [None]
  - STOMATITIS [None]
  - HYPERTENSION [None]
